FAERS Safety Report 4556622-0 (Version None)
Quarter: 2005Q1

REPORT INFORMATION
  Report Type: 
  Country: None (occurrence: None)
  Receive Date: 20050118
  Receipt Date: 20050107
  Transmission Date: 20050727
  Serious: Yes (Hospitalization)
  Sender: FDA-Public Use
  Company Number: 001-0981-M0000292

PATIENT
  Age: 68 Year
  Sex: Male
  Weight: 99.3377 kg

DRUGS (4)
  1. ATORVASTATIN (ATORVASTATIN) [Suspect]
     Indication: HYPERLIPIDAEMIA
     Dosage: 10 MG (DAILY), ORAL
     Route: 048
     Dates: start: 19981124, end: 19990120
  2. ASPIRIN (ACETYSALICYLIC ACID) [Concomitant]
  3. GARLIC (GARLIC) [Concomitant]
  4. GINSENG (GINSENG) [Concomitant]

REACTIONS (3)
  - DIZZINESS [None]
  - GASTRIC ULCER [None]
  - HAEMATOCHEZIA [None]
